FAERS Safety Report 5767847-0 (Version None)
Quarter: 2008Q2

REPORT INFORMATION
  Report Type: 
  Country: None (occurrence: None)
  Receive Date: 20080612
  Receipt Date: 20080609
  Transmission Date: 20081010
  Serious: Yes (Death)
  Sender: FDA-Public Use
  Company Number: PHHY2008JP10467

PATIENT
  Age: 78 Year
  Sex: Male

DRUGS (3)
  1. VOLTAREN [Suspect]
     Indication: PAIN IN EXTREMITY
     Dosage: 75 MG
     Route: 048
  2. LANIRAPID [Suspect]
     Indication: ATRIAL FIBRILLATION
     Dosage: 0.1 MG
     Route: 048
  3. LASIX [Concomitant]
     Indication: ATRIAL FIBRILLATION
     Dosage: 20 MG
     Route: 048

REACTIONS (2)
  - RENAL FAILURE [None]
  - THERAPEUTIC AGENT TOXICITY [None]
